FAERS Safety Report 17584071 (Version 12)
Quarter: 2022Q3

REPORT INFORMATION
  Report Type: Spontaneous
  Country: GB (occurrence: GB)
  Receive Date: 20200326
  Receipt Date: 20220919
  Transmission Date: 20221027
  Serious: Yes (Life-Threatening, Hospitalization, Disabling, Other)
  Sender: FDA-Public Use
  Company Number: None

PATIENT
  Age: 31 Year
  Sex: Female
  Weight: 63.5 kg

DRUGS (69)
  1. OMEPRAZOLE [Interacting]
     Active Substance: OMEPRAZOLE
     Indication: Dyspepsia
     Dosage: 20 MILLIGRAM, QD (CAPSULE)
     Route: 048
     Dates: start: 20110525
  2. OMEPRAZOLE [Interacting]
     Active Substance: OMEPRAZOLE
     Dosage: 20 MILLIGRAM, (CAPSULE)
     Route: 048
  3. QUETIAPINE FUMARATE [Interacting]
     Active Substance: QUETIAPINE FUMARATE
     Indication: Product used for unknown indication
     Dosage: 245 MILLIGRAM
     Route: 048
     Dates: start: 19990801, end: 20110706
  4. QUETIAPINE FUMARATE [Interacting]
     Active Substance: QUETIAPINE FUMARATE
     Dosage: 300 MILLIGRAM
     Route: 048
     Dates: start: 20110224, end: 20110506
  5. QUETIAPINE FUMARATE [Interacting]
     Active Substance: QUETIAPINE FUMARATE
     Dosage: UNK
     Route: 048
  6. AMITRIPTYLINE [Interacting]
     Active Substance: AMITRIPTYLINE
     Indication: Neuralgia
     Dosage: 25 MILLIGRAM, HS AT NIGHT) TABLET UNCOATED)
     Route: 065
     Dates: start: 20110810
  7. AMITRIPTYLINE [Interacting]
     Active Substance: AMITRIPTYLINE
     Dosage: UNK
     Route: 048
  8. AMITRIPTYLINE [Interacting]
     Active Substance: AMITRIPTYLINE
     Dosage: UNK
     Route: 048
  9. AMITRIPTYLINE [Interacting]
     Active Substance: AMITRIPTYLINE
     Dosage: UNK
     Route: 048
  10. AMITRIPTYLINE [Interacting]
     Active Substance: AMITRIPTYLINE
     Dosage: UNK
     Route: 048
  11. CODEINE [Interacting]
     Active Substance: CODEINE
     Indication: Analgesic therapy
     Dosage: UNK
     Route: 048
     Dates: start: 2002, end: 2002
  12. CODEINE [Interacting]
     Active Substance: CODEINE
     Dosage: 30 MILLIGRAM, QID
     Route: 048
     Dates: start: 2002
  13. CODEINE [Interacting]
     Active Substance: CODEINE
     Dosage: UNK
     Route: 048
     Dates: start: 2008, end: 2008
  14. CODEINE [Interacting]
     Active Substance: CODEINE
     Dosage: 30 MILLIGRAM, QID
     Route: 048
     Dates: start: 2008
  15. CODEINE [Interacting]
     Active Substance: CODEINE
     Dosage: UNK
     Route: 048
     Dates: start: 20110224, end: 20110410
  16. CODEINE [Interacting]
     Active Substance: CODEINE
     Dosage: 30 MILLIGRAM, QID
     Route: 048
     Dates: start: 20110615, end: 20110723
  17. CODEINE [Interacting]
     Active Substance: CODEINE
     Dosage: UNK, UNK (EVERY 24 HOURS)
     Route: 048
     Dates: start: 20110615, end: 20110723
  18. CODEINE [Interacting]
     Active Substance: CODEINE
     Dosage: UNK, UNK (EVERY 24 HOURS)
     Route: 048
     Dates: start: 20110615, end: 20110723
  19. CODEINE [Interacting]
     Active Substance: CODEINE
     Dosage: UNK
     Route: 048
  20. CLONAZEPAM [Interacting]
     Active Substance: CLONAZEPAM
     Indication: Sedation
     Dosage: UNK DRUG NO LONGER ADMINISTERED
     Route: 048
     Dates: start: 20110224, end: 20110410
  21. DOMPERIDONE [Interacting]
     Active Substance: DOMPERIDONE
     Indication: Product used for unknown indication
     Dosage: UNK
     Route: 048
     Dates: start: 20100923, end: 20101108
  22. DOMPERIDONE [Interacting]
     Active Substance: DOMPERIDONE
     Dosage: UNK
     Route: 048
  23. DOMPERIDONE [Interacting]
     Active Substance: DOMPERIDONE
     Dosage: UNK
     Route: 048
  24. DIAZEPAM [Interacting]
     Active Substance: DIAZEPAM
     Indication: Product used for unknown indication
     Dosage: 5 MILLIGRAM FOUR TIMES A DAY
     Route: 048
     Dates: start: 20110725
  25. DIAZEPAM [Interacting]
     Active Substance: DIAZEPAM
     Dosage: 8 MILLIGRAM 4 TIMES A DAY
     Route: 048
     Dates: start: 20110725
  26. DIAZEPAM [Interacting]
     Active Substance: DIAZEPAM
     Dosage: UNK
     Route: 048
  27. LORAZEPAM [Interacting]
     Active Substance: LORAZEPAM
     Indication: Sedation
     Dosage: 4 MILLIGRAM, QD
     Route: 048
     Dates: start: 20110202, end: 20110410
  28. LORAZEPAM [Interacting]
     Active Substance: LORAZEPAM
     Dosage: 4 MILLIGRAM
     Route: 048
     Dates: start: 20110224, end: 20110410
  29. LORAZEPAM [Interacting]
     Active Substance: LORAZEPAM
     Dosage: 4 MILLIGRAM, 4 TIMES PER DAY
     Route: 048
     Dates: start: 20110224, end: 20110410
  30. LORAZEPAM [Interacting]
     Active Substance: LORAZEPAM
     Dosage: 4 MILLIGRAM
     Route: 048
     Dates: start: 20110523, end: 20110627
  31. LORAZEPAM [Interacting]
     Active Substance: LORAZEPAM
     Dosage: 1 MILLIGRAM, QID
     Route: 048
     Dates: start: 20110523, end: 20110627
  32. LORAZEPAM [Interacting]
     Active Substance: LORAZEPAM
     Dosage: 1 MILLIGRAM, 1 DAY
     Route: 048
     Dates: start: 20110725
  33. MIRTAZAPINE [Interacting]
     Active Substance: MIRTAZAPINE
     Indication: Depression
     Dosage: 30 MILLIGRAM, QD
     Route: 048
     Dates: start: 20110224, end: 20110506
  34. MIRTAZAPINE [Interacting]
     Active Substance: MIRTAZAPINE
     Dosage: 30 MILLIGRAM, QD, (UNSURE)
     Route: 048
     Dates: start: 20100923, end: 20101108
  35. MIRTAZAPINE [Interacting]
     Active Substance: MIRTAZAPINE
     Dosage: 30 MILLIGRAM, QD
     Route: 048
     Dates: start: 20101007, end: 20101012
  36. MIRTAZAPINE [Interacting]
     Active Substance: MIRTAZAPINE
     Dosage: 30MG IN THE DAY AND 15MG AT NIGHT
     Route: 065
  37. MIRTAZAPINE [Interacting]
     Active Substance: MIRTAZAPINE
     Dosage: 15 MILLIGRAM, BID
     Route: 065
  38. PROCYCLIDINE [Interacting]
     Active Substance: PROCYCLIDINE
     Indication: Extrapyramidal disorder
     Dosage: 5 MILLIGRAM, QD
     Route: 048
     Dates: start: 1995, end: 1995
  39. PROCYCLIDINE [Interacting]
     Active Substance: PROCYCLIDINE
     Indication: Oculogyric crisis
     Dosage: 5 MILLIGRAM, QD
     Route: 048
     Dates: start: 1995, end: 1996
  40. PROCYCLIDINE [Interacting]
     Active Substance: PROCYCLIDINE
     Dosage: 20 MILLIGRAM, QD
     Route: 048
     Dates: start: 20110324, end: 20110506
  41. PROCYCLIDINE [Interacting]
     Active Substance: PROCYCLIDINE
     Dosage: 1ST TRIMESTER
     Route: 048
     Dates: start: 20110415
  42. PROCYCLIDINE [Interacting]
     Active Substance: PROCYCLIDINE
     Dosage: 15 MILLIGRAM, QD
     Route: 048
     Dates: start: 20110503, end: 20110510
  43. PROCYCLIDINE [Interacting]
     Active Substance: PROCYCLIDINE
     Dosage: 5 MILLIGRAM, TID
     Route: 048
     Dates: start: 20110503, end: 20110510
  44. PAROXETINE [Interacting]
     Active Substance: PAROXETINE
     Indication: Post-traumatic stress disorder
     Dosage: UNK
     Route: 048
     Dates: start: 1996
  45. PAROXETINE [Interacting]
     Active Substance: PAROXETINE
     Dosage: 60 MILLIGRAM, QD
     Route: 048
     Dates: start: 1997
  46. PAROXETINE [Interacting]
     Active Substance: PAROXETINE
     Dosage: 60 MILLIGRAM, QD
     Route: 048
     Dates: start: 1997, end: 201105
  47. PAROXETINE [Interacting]
     Active Substance: PAROXETINE
     Dosage: 40 MILLIGRAM, QD
     Route: 048
     Dates: start: 19990801, end: 20110706
  48. PAROXETINE [Interacting]
     Active Substance: PAROXETINE
     Dosage: 60 MILLIGRAM, TID
     Route: 048
     Dates: start: 19990801, end: 201105
  49. PAROXETINE [Interacting]
     Active Substance: PAROXETINE
     Dosage: 40 MILLIGRAM, QD
     Route: 048
     Dates: start: 201105, end: 20110706
  50. PHOSPHORUS [Interacting]
     Active Substance: PHOSPHORUS
     Indication: Product used for unknown indication
     Dosage: UNK
     Route: 065
  51. PHOSPHORUS [Interacting]
     Active Substance: PHOSPHORUS
     Dosage: UNK
     Route: 065
  52. PAROXETINE HYDROCHLORIDE [Interacting]
     Active Substance: PAROXETINE HYDROCHLORIDE
     Indication: Product used for unknown indication
     Dosage: 60 MILLIGRAM, QD, (20MG THREE TIMES PER DAY)
     Route: 048
     Dates: start: 19990801, end: 201105
  53. PAROXETINE HYDROCHLORIDE [Interacting]
     Active Substance: PAROXETINE HYDROCHLORIDE
     Dosage: 40 MILLIGRAM, QD, (20MG TWO PER DAY)
     Route: 048
     Dates: start: 201105, end: 20110706
  54. PAROXETINE HYDROCHLORIDE [Interacting]
     Active Substance: PAROXETINE HYDROCHLORIDE
     Dosage: UNK
     Route: 048
     Dates: start: 201012
  55. PAROXETINE HYDROCHLORIDE [Interacting]
     Active Substance: PAROXETINE HYDROCHLORIDE
     Dosage: 60 MILLIGRAM, QD
     Route: 048
     Dates: start: 1997, end: 201105
  56. PAROXETINE HYDROCHLORIDE [Interacting]
     Active Substance: PAROXETINE HYDROCHLORIDE
     Dosage: 60 MILLIGRAM, TID DRUG WITHDRAWN
     Route: 048
     Dates: start: 1999, end: 201105
  57. PAROXETINE HYDROCHLORIDE [Interacting]
     Active Substance: PAROXETINE HYDROCHLORIDE
     Dosage: 1 DOSAGE FORM, QD
     Route: 048
     Dates: start: 200812, end: 20101210
  58. TRAMADOL [Interacting]
     Active Substance: TRAMADOL
     Indication: Analgesic therapy
     Dosage: 5 MILLIGRAM, QD (IONTOPHORESIS ROUTE)
     Route: 050
     Dates: start: 1995, end: 1995
  59. TRAMADOL [Interacting]
     Active Substance: TRAMADOL
     Indication: Back pain
     Dosage: 5 MILLIGRAM, QD
     Route: 065
     Dates: start: 1995, end: 1996
  60. TRAMADOL [Interacting]
     Active Substance: TRAMADOL
     Indication: Oculogyric crisis
     Dosage: 5 MILLIGRAM, QD
     Route: 048
     Dates: start: 1995, end: 1996
  61. TRAMADOL [Interacting]
     Active Substance: TRAMADOL
     Dosage: 100 MILLIGRAM, QID
     Route: 048
     Dates: start: 20080722
  62. TRAMADOL [Interacting]
     Active Substance: TRAMADOL
     Dosage: 100 MILLIGRAM, QID
     Route: 065
     Dates: start: 20080722
  63. TRAMADOL [Interacting]
     Active Substance: TRAMADOL
     Dosage: UNK
     Route: 048
     Dates: start: 20080722, end: 2009
  64. TRAMADOL [Interacting]
     Active Substance: TRAMADOL
     Dosage: UNK
     Route: 048
     Dates: start: 20080722
  65. TRAMADOL [Interacting]
     Active Substance: TRAMADOL
     Dosage: 100 MILLIGRAM, QD
     Route: 048
     Dates: start: 20081201, end: 20101210
  66. TRAMADOL [Interacting]
     Active Substance: TRAMADOL
     Dosage: UNK
     Route: 065
     Dates: start: 20081201, end: 20101210
  67. TRAMADOL [Interacting]
     Active Substance: TRAMADOL
     Dosage: 4 MILLIGRAM, QD ((50-100 MG QD))
     Route: 065
     Dates: start: 20081201, end: 20081201
  68. TRAMADOL [Interacting]
     Active Substance: TRAMADOL
     Dosage: 4 CYCLICAL, QD
     Route: 065
     Dates: start: 2008, end: 2009
  69. TRAMADOL [Interacting]
     Active Substance: TRAMADOL
     Dosage: 8 MILLIGRAM,
     Route: 065

REACTIONS (89)
  - Feeling of body temperature change [Unknown]
  - Seizure [Unknown]
  - Muscle spasms [Unknown]
  - Exposure during pregnancy [Unknown]
  - Nightmare [Unknown]
  - Drug interaction [Unknown]
  - Mania [Unknown]
  - Feeling jittery [Unknown]
  - Serotonin syndrome [Not Recovered/Not Resolved]
  - Tremor [Not Recovered/Not Resolved]
  - Anxiety [Unknown]
  - Restless legs syndrome [Not Recovered/Not Resolved]
  - Dyspnoea [Unknown]
  - Sleep disorder [Unknown]
  - Headache [Unknown]
  - Decreased appetite [Unknown]
  - Mood swings [Unknown]
  - Derealisation [Not Recovered/Not Resolved]
  - H1N1 influenza [Unknown]
  - Delirium [Unknown]
  - Depersonalisation/derealisation disorder [Not Recovered/Not Resolved]
  - Vomiting [Unknown]
  - Hyperhidrosis [Unknown]
  - Pyrexia [Unknown]
  - Dyskinesia [Unknown]
  - Emotional disorder [Unknown]
  - Blood sodium decreased [Unknown]
  - Asthenia [Unknown]
  - Feeling of despair [Unknown]
  - Visual impairment [Unknown]
  - Somnolence [Not Recovered/Not Resolved]
  - Confusional state [Not Recovered/Not Resolved]
  - Hallucination [Unknown]
  - Restlessness [Unknown]
  - Urinary retention [Unknown]
  - Disturbance in attention [Unknown]
  - Agitation [Unknown]
  - Skin discolouration [Not Recovered/Not Resolved]
  - Arthralgia [Unknown]
  - Premature labour [Not Recovered/Not Resolved]
  - Dystonia [Unknown]
  - Dissociation [Not Recovered/Not Resolved]
  - Drug withdrawal syndrome [Unknown]
  - Suicidal ideation [Not Recovered/Not Resolved]
  - Disorientation [Not Recovered/Not Resolved]
  - Fatigue [Unknown]
  - Illness [Unknown]
  - Speech disorder [Unknown]
  - Depression [Unknown]
  - Aphasia [Not Recovered/Not Resolved]
  - Psychotic disorder [Recovered/Resolved]
  - Illness [Unknown]
  - Paraesthesia [Unknown]
  - Hallucinations, mixed [Unknown]
  - Swollen tongue [Unknown]
  - Menstrual disorder [Unknown]
  - Muscle rigidity [Unknown]
  - Contusion [Unknown]
  - Hypoaesthesia oral [Unknown]
  - Pallor [Unknown]
  - Muscle disorder [Unknown]
  - Musculoskeletal stiffness [Unknown]
  - Pruritus [Unknown]
  - Paralysis [Unknown]
  - Hypoaesthesia [Not Recovered/Not Resolved]
  - Cyanosis [Unknown]
  - Balance disorder [Unknown]
  - Gastric pH decreased [Unknown]
  - Sensory loss [Unknown]
  - Parosmia [Unknown]
  - Heart rate increased [Unknown]
  - Incontinence [Not Recovered/Not Resolved]
  - Swelling face [Unknown]
  - Diarrhoea [Unknown]
  - Toxicity to various agents [Unknown]
  - Tachycardia [Unknown]
  - Dizziness [Unknown]
  - Vision blurred [Unknown]
  - Schizophrenia [Unknown]
  - Tinnitus [Unknown]
  - Gait disturbance [Unknown]
  - Drooling [Unknown]
  - Eye pain [Unknown]
  - Cogwheel rigidity [Unknown]
  - Neuroleptic malignant syndrome [Unknown]
  - Mydriasis [Unknown]
  - Limb injury [Unknown]
  - Therapeutic product ineffective [Unknown]
  - Off label use [Unknown]

NARRATIVE: CASE EVENT DATE: 20030101
